FAERS Safety Report 5482186-3 (Version None)
Quarter: 2007Q4

REPORT INFORMATION
  Report Type: 
  Country: None (occurrence: None)
  Receive Date: 20071005
  Receipt Date: 20070926
  Transmission Date: 20080405
  Serious: Yes (Death, Life-Threatening, Hospitalization, Other)
  Sender: FDA-Public Use
  Company Number: 2007SP017324

PATIENT
  Age: 58 Year
  Sex: Male

DRUGS (3)
  1. INTRON A [Suspect]
     Indication: RENAL CELL CARCINOMA STAGE UNSPECIFIED
     Dosage: 3 MIU;TIW;IM
     Route: 030
     Dates: start: 20031201, end: 20061001
  2. MS CONTIN [Concomitant]
  3. PURSENNIDE [Concomitant]

REACTIONS (7)
  - BONE MARROW FAILURE [None]
  - BRONCHOPULMONARY ASPERGILLOSIS [None]
  - METABOLIC ACIDOSIS [None]
  - PLEURAL EFFUSION [None]
  - RESPIRATORY FAILURE [None]
  - THYROIDITIS CHRONIC [None]
  - TYPE 1 DIABETES MELLITUS [None]
